FAERS Safety Report 16257743 (Version 2)
Quarter: 2020Q2

REPORT INFORMATION
  Report Type: Spontaneous
  Country: US (occurrence: US)
  Receive Date: 20190430
  Receipt Date: 20200407
  Transmission Date: 20200713
  Serious: No
  Sender: FDA-Public Use
  Company Number: US-TEVA-2019-US-1042405

PATIENT
  Sex: Female

DRUGS (1)
  1. TRAZODONE HYDROCHLORIDE TABLETS [Suspect]
     Active Substance: TRAZODONE HYDROCHLORIDE
     Indication: INSOMNIA
     Route: 065
     Dates: start: 2011

REACTIONS (2)
  - Therapeutic response unexpected [Unknown]
  - Drug ineffective [Unknown]
